FAERS Safety Report 19003381 (Version 1)
Quarter: 2021Q1

REPORT INFORMATION
  Report Type: Spontaneous
  Country: DE (occurrence: DE)
  Receive Date: 20210312
  Receipt Date: 20210312
  Transmission Date: 20210420
  Serious: Yes (Death, Hospitalization)
  Sender: FDA-Public Use
  Company Number: DE-TEVA-2021-DE-1888124

PATIENT
  Age: 76 Year
  Sex: Male

DRUGS (12)
  1. TINCTURA OPII [Concomitant]
     Dosage: 15 GTT DAILY; 1?1?1?0
  2. FOLINSAURE [Suspect]
     Active Substance: LEUCOVORIN
     Dosage: 15?SEP?2020
     Route: 065
  3. LEFAX [Concomitant]
     Active Substance: DIMETHICONE
     Dosage: 3 DOSAGE FORMS DAILY; 1?1?1?0
  4. TORASEMID [Concomitant]
     Active Substance: TORSEMIDE
     Dosage: 15 MILLIGRAM DAILY; 1?0?0?0
  5. MCP [Concomitant]
     Active Substance: METOCLOPRAMIDE HYDROCHLORIDE
     Dosage: 30 MILLIGRAM DAILY; 1?1?1?0
  6. METAMIZOL [Concomitant]
     Active Substance: METAMIZOLE SODIUM
     Dosage: 500 MG, 3X
  7. RAMIPRIL. [Concomitant]
     Active Substance: RAMIPRIL
     Dosage: 5 MG, PAUSE
  8. IRINOTECAN [Suspect]
     Active Substance: IRINOTECAN
     Dosage: 15?SEP?2020
     Route: 065
  9. COLECALCIFEROL (VITAMIN D) [Concomitant]
     Active Substance: CHOLECALCIFEROL
     Dosage: 1000 IU (INTERNATIONAL UNIT) DAILY; 1?0?0?0
  10. AMLODIPIN [Concomitant]
     Active Substance: AMLODIPINE BESYLATE
     Dosage: 5 MG, PAUSE
  11. FLUOROURACIL. [Suspect]
     Active Substance: FLUOROURACIL
     Dosage: 15?SEP?2020
     Route: 065
  12. PREGABALIN. [Concomitant]
     Active Substance: PREGABALIN
     Dosage: 500 MILLIGRAM DAILY;  1?0?1?0

REACTIONS (7)
  - Fatigue [Unknown]
  - Pallor [Unknown]
  - Electrolyte imbalance [Unknown]
  - Tachypnoea [Unknown]
  - Angina pectoris [Unknown]
  - General physical health deterioration [Unknown]
  - Condition aggravated [Unknown]
